FAERS Safety Report 5337855-2 (Version None)
Quarter: 2007Q2

REPORT INFORMATION
  Report Type: 
  Country: None (occurrence: None)
  Receive Date: 20070314
  Receipt Date: 20061202
  Transmission Date: 20071010
  Serious: Yes (Other)
  Sender: FDA-Public Use
  Company Number: 2006113788

PATIENT
  Age: 55 Year
  Sex: Female

DRUGS (4)
  1. ERAXIS [Suspect]
     Indication: ASPERGILLOSIS
     Dosage: 100 MG (100 MG,EVERY DAY), INTRAVENOUS
     Route: 042
     Dates: start: 20060101
  2. ERAXIS [Suspect]
     Indication: SINUSITIS ASPERGILLUS
     Dosage: 100 MG (100 MG,EVERY DAY), INTRAVENOUS
     Route: 042
     Dates: start: 20060101
  3. ROCEPHIN [Concomitant]
  4. CIPROFLOXACIN [Concomitant]

REACTIONS (1)
  - LIVER FUNCTION TEST ABNORMAL [None]
